FAERS Safety Report 8296598-6 (Version None)
Quarter: 2012Q2

REPORT INFORMATION
  Report Type: 
  Country: None (occurrence: None)
  Receive Date: 20120418
  Receipt Date: 20120418
  Transmission Date: 20120825
  Serious: Yes (Hospitalization)
  Sender: FDA-Public Use
  Company Number: None

PATIENT
  Age: 92 Year
  Sex: Male
  Weight: 73 kg

DRUGS (15)
  1. ACETMINOPHEN [Concomitant]
     Route: 048
  2. DOCUSATE CALCIUM [Concomitant]
     Route: 048
  3. DIGOXIN [Concomitant]
     Route: 048
  4. CARVEDILOL [Concomitant]
     Route: 048
  5. LOSARTAN POTASSIUM [Concomitant]
     Route: 048
  6. ACETMINOPHEN [Concomitant]
     Route: 048
  7. BETAMETHASONE/CLOTRIMAZOLE CREAM [Concomitant]
     Route: 061
  8. FERROUS SULFATE TAB [Concomitant]
     Route: 048
  9. WHEAT DEXTRIN [Concomitant]
     Route: 048
  10. ATORVASTATIN [Concomitant]
     Route: 048
  11. GLIMEPIRIDE [Concomitant]
     Route: 048
  12. CLOPIDOGREL [Suspect]
     Indication: CORONARY ARTERY DISEASE
     Dosage: 75 MG
     Route: 048
  13. ASPIRIN [Concomitant]
     Indication: CORONARY ARTERY DISEASE
     Dosage: 81 MG
     Route: 048
  14. FINASTERIDE [Concomitant]
     Route: 048
  15. FUROSEMIDE [Concomitant]
     Route: 048

REACTIONS (4)
  - RECTAL HAEMORRHAGE [None]
  - ANAEMIA [None]
  - DUODENAL ULCER [None]
  - SYNCOPE [None]
